FAERS Safety Report 13636244 (Version 1)
Quarter: 2017Q2

REPORT INFORMATION
  Report Type: Spontaneous
  Country: US (occurrence: US)
  Receive Date: 20170531
  Receipt Date: 20170531
  Transmission Date: 20170830
  Serious: No
  Sender: FDA-Public Use
  Company Number: US-ASTELLAS-1799583

PATIENT
  Sex: Male
  Weight: 50.39 kg

DRUGS (9)
  1. LOSARTAN POTASSIUM. [Concomitant]
     Active Substance: LOSARTAN POTASSIUM
  2. LEVOTHYROXINE. [Concomitant]
     Active Substance: LEVOTHYROXINE
  3. TARCEVA [Suspect]
     Active Substance: ERLOTINIB HYDROCHLORIDE
     Indication: LUNG NEOPLASM MALIGNANT
     Route: 048
     Dates: start: 20160627
  4. METOPROLOL. [Concomitant]
     Active Substance: METOPROLOL
  5. TARCEVA [Suspect]
     Active Substance: ERLOTINIB HYDROCHLORIDE
     Dosage: FREQUENCY: ONE TABLET FOR 2 DAYS AND ONE DAY OFF
     Route: 048
     Dates: start: 20160627
  6. ASPIRIN. [Concomitant]
     Active Substance: ASPIRIN
  7. FENOFIBRATE. [Concomitant]
     Active Substance: FENOFIBRATE
  8. GLIPIZIDE. [Concomitant]
     Active Substance: GLIPIZIDE
  9. PEPCID (UNITED STATES) [Concomitant]

REACTIONS (8)
  - Pruritus [Unknown]
  - Dry skin [Unknown]
  - Back pain [Unknown]
  - Myalgia [Unknown]
  - Gastrooesophageal reflux disease [Recovering/Resolving]
  - Abdominal pain upper [Unknown]
  - Arthralgia [Unknown]
  - Stomatitis [Unknown]
